FAERS Safety Report 9058738 (Version 4)
Quarter: 2013Q1

REPORT INFORMATION
  Report Type: Spontaneous
  Country: IT (occurrence: IT)
  Receive Date: 20130204
  Receipt Date: 20130325
  Transmission Date: 20140127
  Serious: Yes (Hospitalization)
  Sender: FDA-Public Use
  Company Number: IT-009507513-1301ITA013864

PATIENT
  Age: 24 Year
  Sex: Male

DRUGS (4)
  1. ISENTRESS [Suspect]
     Dosage: 400 MG, ONCE (TOTAL)
     Route: 048
     Dates: start: 20130104, end: 20130104
  2. NORVIR [Suspect]
     Dosage: 500 MG, ONCE (TOTAL)
     Route: 048
     Dates: start: 20130104, end: 20130104
  3. VIREAD [Suspect]
     Dosage: 245 MG, ONCE (TOTAL)
     Route: 048
     Dates: start: 20130104, end: 20130104
  4. VIRAMUNE [Suspect]
     Dosage: 400 MG, ONCE (TOTAL)
     Route: 048
     Dates: start: 20130104, end: 20130104

REACTIONS (2)
  - Sopor [Recovered/Resolved]
  - Drug abuse [Recovered/Resolved]
